FAERS Safety Report 5380073-2 (Version None)
Quarter: 2007Q3

REPORT INFORMATION
  Report Type: 
  Country: None (occurrence: None)
  Receive Date: 20070706
  Receipt Date: 20070417
  Transmission Date: 20080115
  Serious: No
  Sender: FDA-Public Use
  Company Number: A0647641A

PATIENT
  Age: 82 Year
  Sex: Female

DRUGS (17)
  1. TYKERB [Suspect]
     Indication: BREAST CANCER
     Dosage: 1250MG PER DAY
     Route: 048
     Dates: start: 20070414, end: 20070416
  2. XELODA [Suspect]
     Dosage: 3500MG PER DAY
     Dates: start: 20070414, end: 20070416
  3. PHENERGAN HCL [Concomitant]
  4. LISINOPRIL [Concomitant]
  5. LASIX [Concomitant]
  6. ASPIRIN [Concomitant]
  7. NEXIUM [Concomitant]
  8. MAG-OX [Concomitant]
  9. K-DUR 10 [Concomitant]
  10. CALCIUM CHLORIDE [Concomitant]
  11. VIT D [Concomitant]
  12. ZINC [Concomitant]
  13. WARFARIN SODIUM [Concomitant]
  14. M.V.I. [Concomitant]
  15. LANOXIN [Concomitant]
  16. COZAAR [Concomitant]
  17. GAS X [Concomitant]

REACTIONS (3)
  - CHEST DISCOMFORT [None]
  - NAUSEA [None]
  - PARAESTHESIA [None]
